FAERS Safety Report 6028458-5 (Version None)
Quarter: 2009Q1

REPORT INFORMATION
  Report Type: 
  Country: None (occurrence: None)
  Receive Date: 20090106
  Receipt Date: 20081222
  Transmission Date: 20090719
  Serious: Yes (Other)
  Sender: FDA-Public Use
  Company Number: BR-PFIZER INC-2008038012

PATIENT

DRUGS (7)
  1. FRONTAL XR [Suspect]
     Dosage: 0.5 MG, 2X/DAY
     Route: 048
     Dates: start: 20080501
  2. FRONTAL [Interacting]
     Indication: ANXIETY
     Dosage: 0.5 MG, UNK
     Dates: start: 20080425
  3. BELARA [Interacting]
     Dosage: UNK
     Route: 065
     Dates: start: 20081130
  4. CITALOPRAM [Concomitant]
     Route: 048
     Dates: start: 20080425
  5. CENTRUM [Concomitant]
  6. BORAGO OFFICINALIS [Concomitant]
     Dates: start: 20080101
  7. RANITIDINE [Concomitant]
     Dosage: UNK

REACTIONS (38)
  - ABDOMINAL DISCOMFORT [None]
  - ABDOMINAL PAIN [None]
  - ALOPECIA [None]
  - ANXIETY [None]
  - ARTHRALGIA [None]
  - BLOOD PRESSURE FLUCTUATION [None]
  - BLOOD PRESSURE INCREASED [None]
  - BRADYPHRENIA [None]
  - DEPRESSED MOOD [None]
  - DIZZINESS [None]
  - DRUG DOSE OMISSION [None]
  - DRUG INEFFECTIVE [None]
  - DRUG INTERACTION [None]
  - DRUG WITHDRAWAL SYNDROME [None]
  - DRY MOUTH [None]
  - DYSPHONIA [None]
  - FEELING ABNORMAL [None]
  - FEELING COLD [None]
  - FEELING HOT [None]
  - FORMICATION [None]
  - HEADACHE [None]
  - HYPERHIDROSIS [None]
  - HYPOAESTHESIA [None]
  - IRRITABILITY [None]
  - MALAISE [None]
  - MENSTRUATION IRREGULAR [None]
  - MOOD ALTERED [None]
  - MUSCULAR WEAKNESS [None]
  - NASAL CONGESTION [None]
  - NASAL DISCOMFORT [None]
  - NAUSEA [None]
  - OBSESSIVE THOUGHTS [None]
  - PALPITATIONS [None]
  - PARALYSIS [None]
  - TACHYCARDIA [None]
  - TENDON PAIN [None]
  - TENSION [None]
  - TREMOR [None]
